FAERS Safety Report 7402285-6 (Version None)
Quarter: 2011Q2

REPORT INFORMATION
  Report Type: 
  Country: None (occurrence: None)
  Receive Date: 20110408
  Receipt Date: 20110331
  Transmission Date: 20111010
  Serious: Yes (Hospitalization)
  Sender: FDA-Public Use
  Company Number: AU-NOVOPROD-324139

PATIENT
  Age: 78 Year
  Sex: Male
  Weight: 80 kg

DRUGS (8)
  1. CRANBERRY                          /01512301/ [Concomitant]
     Dosage: 10 G, UNK
  2. COVERSYL                           /00790702/ [Concomitant]
     Dosage: 10 MG, UNK
  3. PROTAPHANE PENFILL [Suspect]
     Indication: TYPE 1 DIABETES MELLITUS
     Dosage: 30 UNITS IN THE MORNING, 20 UNITS IN THE EVENING, QD
     Route: 065
  4. ASPIRIN [Concomitant]
     Dosage: 100 MG, QD
  5. METFORMIN HCL [Concomitant]
     Dosage: EACH MAIN MEAL
  6. NOVORAPID PENFILL [Suspect]
     Indication: TYPE 1 DIABETES MELLITUS
     Dosage: 10 UNITS IN THE MORNING AND 10 UNITS IN THE EVENING, QD
     Route: 065
  7. METROL                             /00012501/ [Concomitant]
     Dosage: 50 MG, UNK
  8. CADUET [Concomitant]
     Dosage: AMLODIPINE 5MG AND ATORVASTATIN 10MG

REACTIONS (4)
  - KIDNEY INFECTION [None]
  - SEPSIS [None]
  - HYPOGLYCAEMIA [None]
  - CYSTITIS [None]
